FAERS Safety Report 8815012 (Version 3)
Quarter: 2013Q2

REPORT INFORMATION
  Report Type: Spontaneous
  Country: CA (occurrence: CA)
  Receive Date: 20120928
  Receipt Date: 20130409
  Transmission Date: 20140414
  Serious: Yes (Other)
  Sender: FDA-Public Use
  Company Number: CA-ALEXION PHARMACEUTICALS INC.-A201201764

PATIENT
  Age: 14 Year
  Sex: Female
  Weight: 36.7 kg

DRUGS (9)
  1. SOLIRIS 300MG [Suspect]
     Indication: TRANSPLANT REJECTION
     Dosage: 900 MG, SINGLE POD 10
     Route: 042
     Dates: start: 20090724, end: 20090724
  2. SOLIRIS 300MG [Suspect]
     Indication: OFF LABEL USE
     Dosage: 600 MG, SINGLE POD 17 RESCUE THERAPY
     Route: 042
     Dates: start: 20090731, end: 20090731
  3. RABBIT ANTITHYMOCYTE GLOBULIN [Suspect]
     Indication: IMMUNOSUPPRESSION
     Dosage: 12 MG/KG
  4. TACROLIMUS [Suspect]
     Indication: IMMUNOSUPPRESSION
     Dosage: POD 2, BID
     Route: 048
     Dates: start: 20090714
  5. MYCOPHENOLATE MOFETIL [Suspect]
     Indication: IMMUNOSUPPRESSION
     Dosage: UNK, BID
     Dates: start: 20090714
  6. PREDNISONE [Suspect]
     Indication: IMMUNOSUPPRESSION
     Dosage: UNK
     Dates: start: 20090714
  7. CYTOGAM [Suspect]
     Indication: IMMUNOSUPPRESSION
  8. RITUXIMAB [Suspect]
     Indication: IMMUNOSUPPRESSION
     Dosage: UNK, 2 DOSES
     Dates: start: 20090806
  9. IMMUNOGLOBULIN [Concomitant]
     Indication: IMMUNOSUPPRESSION
     Route: 042

REACTIONS (2)
  - Polyomavirus-associated nephropathy [Unknown]
  - Renal graft loss [Unknown]
